FAERS Safety Report 26028185 (Version 1)
Quarter: 2025Q4

REPORT INFORMATION
  Report Type: Spontaneous
  Country: US (occurrence: US)
  Receive Date: 20251111
  Receipt Date: 20251111
  Transmission Date: 20260117
  Serious: No
  Sender: ORASIS PHARMACEUTICALS
  Company Number: US-ORASIS PHARMACEUTIALS-2025ORA00080

PATIENT
  Age: 61 Year
  Sex: Female

DRUGS (1)
  1. QLOSI [Suspect]
     Active Substance: PILOCARPINE HYDROCHLORIDE
     Indication: Presbyopia
     Dosage: UNK, 1 TO 2X/DAY
     Route: 047
     Dates: start: 202507

REACTIONS (4)
  - Drug ineffective [Not Recovered/Not Resolved]
  - Mydriasis [Not Recovered/Not Resolved]
  - Photophobia [Not Recovered/Not Resolved]
  - Vision blurred [Not Recovered/Not Resolved]

NARRATIVE: CASE EVENT DATE: 20250701
